FAERS Safety Report 4989735-X (Version None)
Quarter: 2006Q2

REPORT INFORMATION
  Report Type: 
  Country: None (occurrence: None)
  Receive Date: 20060501
  Receipt Date: 20060417
  Transmission Date: 20061013
  Serious: Yes (Hospitalization)
  Sender: FDA-Public Use
  Company Number: 2006PV012140

PATIENT
  Age: 60 Year
  Sex: Female
  Weight: 83.0083 kg

DRUGS (11)
  1. BYETTA [Suspect]
     Indication: DIABETES MELLITUS NON-INSULIN-DEPENDENT
     Dosage: 5 MCG; BID; SC
     Route: 058
     Dates: start: 20060404
  2. NEXIUM [Concomitant]
  3. GLYBURIDE [Concomitant]
  4. LIPITOR [Concomitant]
  5. TRICOR [Concomitant]
  6. GABAPENTIN [Concomitant]
  7. POTASSIUM CHLORIDE [Concomitant]
  8. PLAVIX [Concomitant]
  9. FUROSEMIDE [Concomitant]
  10. METFORMIN [Concomitant]
  11. LISINOPRIL [Concomitant]

REACTIONS (8)
  - BLOOD GLUCOSE FLUCTUATION [None]
  - CORONARY ARTERY DISEASE [None]
  - DECREASED APPETITE [None]
  - MALAISE [None]
  - MYOCARDIAL INFARCTION [None]
  - NAUSEA [None]
  - VOMITING [None]
  - WEIGHT DECREASED [None]
